FAERS Safety Report 15377574 (Version 2)
Quarter: 2018Q4

REPORT INFORMATION
  Report Type: Spontaneous
  Country: JP (occurrence: JP)
  Receive Date: 20180913
  Receipt Date: 20181005
  Transmission Date: 20190204
  Serious: Yes (Other)
  Sender: FDA-Public Use
  Company Number: JP-SA-2018SA184972

PATIENT
  Age: 4 Decade
  Sex: Male

DRUGS (9)
  1. DUPIXENT [Suspect]
     Active Substance: DUPILUMAB
     Dosage: DAILY DOSE: 300 MG
     Route: 058
     Dates: start: 20180717, end: 20180717
  2. DUPIXENT [Suspect]
     Active Substance: DUPILUMAB
     Indication: DERMATITIS ATOPIC
     Dosage: DAILY DOSE: 300 MG
     Route: 058
     Dates: start: 20180703, end: 20180703
  3. DUPIXENT [Suspect]
     Active Substance: DUPILUMAB
     Dosage: DAILY DOSE: 300 MG
     Route: 058
     Dates: start: 20180817, end: 20180817
  4. OLOPATADINE HYDROCHLORIDE. [Concomitant]
     Active Substance: OLOPATADINE HYDROCHLORIDE
     Indication: DERMATITIS ATOPIC
     Dosage: 5 MG, BID
     Route: 065
  5. DUPIXENT [Suspect]
     Active Substance: DUPILUMAB
     Dosage: DAILY DOSE: 300 MG
     Route: 058
     Dates: start: 20180816, end: 20180816
  6. NERISONA [Concomitant]
     Active Substance: DIFLUCORTOLONE VALERATE
     Indication: DERMATITIS ATOPIC
     Route: 061
  7. DUPIXENT [Suspect]
     Active Substance: DUPILUMAB
     Dosage: DAILY DOSE: 300 MG
     Route: 058
     Dates: start: 20180731, end: 20180731
  8. BROTIZOLAM [Concomitant]
     Active Substance: BROTIZOLAM
     Indication: INSOMNIA
     Dosage: 0.25 MG, QD (BEDTIME)
     Route: 065
  9. CICLOSPORIN [Concomitant]
     Active Substance: CYCLOSPORINE
     Indication: PRODUCT USED FOR UNKNOWN INDICATION
     Route: 048

REACTIONS (4)
  - Oropharyngeal discomfort [Recovered/Resolved]
  - Dyspnoea [Unknown]
  - Dizziness [Recovered/Resolved]
  - Face oedema [Recovering/Resolving]

NARRATIVE: CASE EVENT DATE: 20180704
